FAERS Safety Report 7368830-4 (Version None)
Quarter: 2011Q1

REPORT INFORMATION
  Report Type: 
  Country: None (occurrence: None)
  Receive Date: 20110323
  Receipt Date: 20100914
  Transmission Date: 20110831
  Serious: Yes (Other)
  Sender: FDA-Public Use
  Company Number: US-BAYER-201011105NA

PATIENT
  Sex: Female
  Weight: 97.5 kg

DRUGS (11)
  1. SINGULAIR [Concomitant]
  2. ACIPHEX [Concomitant]
  3. IBUPROFEN [Concomitant]
  4. NAPROXEN [Concomitant]
  5. OCELLA [Suspect]
     Indication: PRODUCT USED FOR UNKNOWN INDICATION
     Dosage: PHARMACY RECORDS: OCELLA DISPENSED. FIRST DATE WAS ON 27-JUL-2008 AND LAST DATE WAS 09-DEC-2008.
     Route: 048
     Dates: start: 20080701, end: 20081201
  6. GENERAL ANESTHESIA [Concomitant]
  7. DIURETICS [Concomitant]
  8. PROAIR HFA [Concomitant]
  9. YASMIN [Suspect]
  10. ASCORBIC ACID [Concomitant]
  11. YAZ [Suspect]
     Indication: PRODUCT USED FOR UNKNOWN INDICATION
     Route: 048

REACTIONS (10)
  - CHOLELITHIASIS [None]
  - EPIGASTRIC DISCOMFORT [None]
  - PAIN [None]
  - CHOLECYSTITIS CHRONIC [None]
  - GALLBLADDER DISORDER [None]
  - ABDOMINAL PAIN UPPER [None]
  - NAUSEA [None]
  - ABDOMINAL DISCOMFORT [None]
  - VOMITING [None]
  - ABDOMINAL TENDERNESS [None]
